FAERS Safety Report 18165489 (Version 2)
Quarter: 2020Q4

REPORT INFORMATION
  Report Type: Spontaneous
  Country: US (occurrence: US)
  Receive Date: 20200818
  Receipt Date: 20201118
  Transmission Date: 20210113
  Serious: No
  Sender: FDA-Public Use
  Company Number: US-IMMUNOMEDICS, INC.-2020IMMU000485

PATIENT
  Age: 58 Year
  Sex: Female

DRUGS (5)
  1. TRODELVY [Suspect]
     Active Substance: SACITUZUMAB GOVITECAN-HZIY
     Dosage: 330 MG, DAYS 1 AND 8 OF 21-DAYS CYCLE
     Route: 065
  2. TRODELVY [Suspect]
     Active Substance: SACITUZUMAB GOVITECAN-HZIY
     Dosage: HALF DOSE DAYS 1 AND 8 OF 21-DAYS CYCLE
     Route: 065
     Dates: start: 20201013, end: 20201013
  3. TRODELVY [Suspect]
     Active Substance: SACITUZUMAB GOVITECAN-HZIY
     Dosage: 330 MG, DAYS 1 AND 8 OF 21-DAYS CYCLE
     Route: 065
  4. TRODELVY [Suspect]
     Active Substance: SACITUZUMAB GOVITECAN-HZIY
     Indication: TRIPLE NEGATIVE BREAST CANCER
     Dosage: 330 MG, DAYS 1 AND 8 OF 21-DAYS CYCLE
     Route: 065
     Dates: start: 20200715, end: 20200715
  5. TRODELVY [Suspect]
     Active Substance: SACITUZUMAB GOVITECAN-HZIY
     Dosage: 330 MG, DAYS 1 AND 8 OF 21-DAYS CYCLE
     Route: 065
     Dates: start: 20200820, end: 20200820

REACTIONS (19)
  - Skin exfoliation [Recovered/Resolved]
  - Therapeutic response increased [Not Recovered/Not Resolved]
  - Back pain [Unknown]
  - Dizziness [Unknown]
  - Vomiting [Recovered/Resolved]
  - Blood urea increased [Recovered/Resolved]
  - Ephelides [Recovered/Resolved]
  - Nausea [Recovered/Resolved]
  - Dyspepsia [Recovered/Resolved]
  - Feeling abnormal [Recovered/Resolved]
  - Malaise [Recovered/Resolved]
  - Nail growth abnormal [Recovered/Resolved]
  - Acne cystic [Recovered/Resolved]
  - Scar [Recovered/Resolved]
  - Headache [Unknown]
  - Fatigue [Recovered/Resolved]
  - Cataract [Not Recovered/Not Resolved]
  - Papilloedema [Not Recovered/Not Resolved]
  - Hair growth rate abnormal [Recovered/Resolved]

NARRATIVE: CASE EVENT DATE: 20200721
